FAERS Safety Report 5314114-5 (Version None)
Quarter: 2007Q2

REPORT INFORMATION
  Report Type: 
  Country: None (occurrence: None)
  Receive Date: 20070501
  Receipt Date: 20070424
  Transmission Date: 20071010
  Serious: Yes (Other)
  Sender: FDA-Public Use
  Company Number: US-PFIZER INC-2007034408

PATIENT
  Age: 45 Year
  Sex: Female

DRUGS (3)
  1. GEODON [Suspect]
  2. CLONIDINE [Concomitant]
  3. ADDERALL 10 [Concomitant]

REACTIONS (1)
  - PANCREATITIS [None]
